FAERS Safety Report 25615532 (Version 1)
Quarter: 2025Q3

REPORT INFORMATION
  Report Type: Spontaneous
  Country: AU (occurrence: AU)
  Receive Date: 20250729
  Receipt Date: 20250729
  Transmission Date: 20251020
  Serious: Yes (Other)
  Sender: ABBVIE
  Company Number: AU-ABBVIE-6383481

PATIENT
  Age: 60 Year
  Sex: Male

DRUGS (6)
  1. HUMIRA [Suspect]
     Active Substance: ADALIMUMAB
     Indication: Product used for unknown indication
     Route: 058
     Dates: start: 2015
  2. UNSPECIFIED INGREDIENT [Concomitant]
     Active Substance: UNSPECIFIED INGREDIENT
     Indication: Product used for unknown indication
  3. DULOXETINE [Concomitant]
     Active Substance: DULOXETINE
     Indication: Product used for unknown indication
  4. SECUKINUMAB [Concomitant]
     Active Substance: SECUKINUMAB
     Indication: Product used for unknown indication
     Dates: start: 201812
  5. PREDNISONE [Concomitant]
     Active Substance: PREDNISONE
     Indication: Product used for unknown indication
     Dates: start: 201508
  6. SULFASALAZINE [Concomitant]
     Active Substance: SULFASALAZINE
     Indication: Product used for unknown indication

REACTIONS (16)
  - Pancreatic failure [Unknown]
  - Inflammation [Unknown]
  - Arthritis [Unknown]
  - Enthesopathy [Unknown]
  - Mucosal inflammation [Unknown]
  - Cognitive disorder [Unknown]
  - Rash [Unknown]
  - Depression [Unknown]
  - Chest pain [Unknown]
  - Arthropathy [Unknown]
  - Fall [Unknown]
  - Sepsis [Unknown]
  - Cholelithiasis [Unknown]
  - Pancreatitis [Unknown]
  - Cholangitis [Unknown]
  - Endoscopic retrograde cholangiopancreatography [Unknown]

NARRATIVE: CASE EVENT DATE: 20180301
